FAERS Safety Report 25125615 (Version 1)
Quarter: 2025Q1

REPORT INFORMATION
  Report Type: Spontaneous
  Country: US (occurrence: None)
  Receive Date: 20250325
  Receipt Date: 20250325
  Transmission Date: 20250408
  Serious: Yes (unspecified)
  Sender: FDA-CTU
  Company Number: None

PATIENT
  Age: 44 Year
  Sex: Female

DRUGS (1)
  1. TADALAFIL [Suspect]
     Active Substance: TADALAFIL
     Indication: Pulmonary arterial hypertension
     Dosage: 40 MG/MG DAILY ORAL
     Route: 048
     Dates: start: 20250303, end: 20250324

REACTIONS (2)
  - Swelling face [None]
  - Vision blurred [None]

NARRATIVE: CASE EVENT DATE: 20250303
